FAERS Safety Report 21790517 (Version 1)
Quarter: 2022Q4

REPORT INFORMATION
  Report Type: Report from Study
  Country: GR (occurrence: GR)
  Receive Date: 20221228
  Receipt Date: 20221228
  Transmission Date: 20230113
  Serious: Yes (Hospitalization, Other)
  Sender: FDA-Public Use
  Company Number: GR-002147023-NVSC2022GR294419

PATIENT

DRUGS (8)
  1. RUXOLITINIB [Suspect]
     Active Substance: RUXOLITINIB
     Indication: Myelofibrosis
     Dosage: 15 MG, BID (2/DAYS)
     Route: 048
     Dates: start: 20221115
  2. NAVITOCLAX [Suspect]
     Active Substance: NAVITOCLAX
     Indication: Myelofibrosis
     Dosage: 200 MG, QD (EVERY 1 DAY)
     Route: 048
     Dates: start: 20221115
  3. ASPIRIN [Concomitant]
     Active Substance: ASPIRIN
     Indication: Thrombosis prophylaxis
     Dosage: 100 MG, QD (EVERY 1 DAYS)
     Route: 065
     Dates: start: 201607
  4. ENTECAVIR [Concomitant]
     Active Substance: ENTECAVIR
     Indication: Antiviral prophylaxis
     Dosage: 0.5 MG, QD (EVERY 1 DAYS)
     Route: 065
     Dates: start: 20221006
  5. LIPITOR [Concomitant]
     Active Substance: ATORVASTATIN CALCIUM
     Indication: Hyperlipidaemia
     Dosage: 20 MG, QD (EVERY 1 DAYS)
     Route: 065
     Dates: start: 201503
  6. CARVEDILOL [Concomitant]
     Active Substance: CARVEDILOL
     Indication: Pulse abnormal
     Dosage: 6.25 MG, BID (2/DAYS)
     Route: 065
     Dates: start: 201503
  7. MEDITHYROX [Concomitant]
     Indication: Hypothyroidism
     Dosage: 75 UG, QD (EVERY 1 DAYS)
     Route: 065
     Dates: start: 20211010
  8. CHOLECALCIFEROL [Concomitant]
     Active Substance: CHOLECALCIFEROL
     Indication: Vitamin supplementation
     Dosage: 2500 IU, QD (EVERY 1 DAYS)
     Route: 065
     Dates: start: 20211021

REACTIONS (2)
  - Pneumonia [Not Recovered/Not Resolved]
  - Thrombocytopenia [Unknown]

NARRATIVE: CASE EVENT DATE: 20221122
